FAERS Safety Report 9171187 (Version 3)
Quarter: 2013Q2

REPORT INFORMATION
  Report Type: Spontaneous
  Country: GB (occurrence: None)
  Receive Date: 20130312
  Receipt Date: 20130408
  Transmission Date: 20140414
  Serious: Yes (Other)
  Sender: FDA-Public Use
  Company Number: FK201300647

PATIENT
  Age: 46 Year
  Sex: Female

DRUGS (26)
  1. VANCOMYCIN [Suspect]
     Indication: PRODUCT USED FOR UNKNOWN INDICATION
     Dates: start: 20110904, end: 20110909
  2. CYTARABINE [Suspect]
     Indication: ACUTE MYELOID LEUKAEMIA
     Dates: start: 20110819, end: 20110828
  3. CYTARABINE [Suspect]
     Indication: MYELODYSPLASTIC SYNDROME
     Dates: start: 20110819, end: 20110828
  4. ETOPOSIDE [Suspect]
     Indication: ACUTE MYELOID LEUKAEMIA
     Dates: start: 20110819, end: 20110828
  5. ETOPOSIDE [Suspect]
     Indication: MYELODYSPLASTIC SYNDROME
     Dates: start: 20110819, end: 20110828
  6. MEROPENEM [Suspect]
     Indication: PRODUCT USED FOR UNKNOWN INDICATION
     Route: 042
     Dates: start: 20110905, end: 20110910
  7. DAUNORUBICIN [Suspect]
     Indication: ACUTE MYELOID LEUKAEMIA
     Dates: start: 20110819, end: 20110828
  8. DAUNORUBICIN [Suspect]
     Indication: MYELODYSPLASTIC SYNDROME
     Dates: start: 20110819, end: 20110828
  9. GEMTUZUMAB OZOGAMICIN [Suspect]
     Indication: ACUTE MYELOID LEUKAEMIA
     Dosage: 3 GM, 1 IN 1 D
     Dates: start: 20110819, end: 20110828
  10. GEMTUZUMAB OZOGAMICIN [Suspect]
     Indication: MYELODYSPLASTIC SYNDROME
     Dosage: 3 GM, 1 IN 1 D
     Dates: start: 20110819, end: 20110828
  11. NORETHISTERONE [Suspect]
     Indication: PRODUCT USED FOR UNKNOWN INDICATION
     Dates: start: 20110818
  12. TAZOCIN [Suspect]
     Indication: PRODUCT USED FOR UNKNOWN INDICATION
     Route: 042
     Dates: start: 20110822, end: 20110825
  13. ACICLOVIR (ACICLOVIR) (ACICLOVIR) [Concomitant]
  14. ALLOPURINOL (ALLOPURINOL) (ALLOPURINOL) [Concomitant]
  15. ANTI-D IMMUNOGLOBULIN (ANTI-D IMMUNOGLOBULIN) (ANTI-D IMMUNOGLOBULIN) [Concomitant]
  16. CODEINE (CODEINE) (CODEINE) [Concomitant]
  17. CYCLIZINE (CYCLIZINE) (CYCLIZINE) [Concomitant]
  18. DOCUSATE SODIUM (DOCUSATE SODIUM) DOCUSATE SODIUM (DOCUSATE SODIUM) [Concomitant]
  19. LORAZEPAM (LORAZEPAM) (LORAZEPAM ) [Concomitant]
  20. OMEPRAZOLE (OMEPRAZOLE) (OMEPROZOLE) [Concomitant]
  21. ONDANSETRON (ONDANSETRON ONDANSETRON [Concomitant]
  22. ORAMORPH (MORPHINE SULFATE) (MORPHINE SULFATE) [Concomitant]
  23. PARACETAMOL (PARACETAMOL) (PARACETAMOL) (PARACETAMOL) [Concomitant]
  24. RANITIDINE (RANITIDINE) (RANITIDINE) [Concomitant]
  25. TRANEXAMIC ACID (TRANEXAMIC ACID ) (TRANEXAMIC ACID (TRANEXAMIC ACID ) [Concomitant]
  26. MORPHINE [Concomitant]
     Indication: PRODUCT USED FOR UNKNOWN INDICATION
     Dates: start: 20110822, end: 20110825

REACTIONS (3)
  - Platelet count decreased [None]
  - Alanine aminotransferase increased [None]
  - Platelet count increased [None]
